FAERS Safety Report 19579914 (Version 1)
Quarter: 2021Q3

REPORT INFORMATION
  Report Type: Spontaneous
  Country: US (occurrence: US)
  Receive Date: 20210719
  Receipt Date: 20210719
  Transmission Date: 20211014
  Serious: Yes (Hospitalization, Other)
  Sender: FDA-Public Use
  Company Number: NVSC2021US157238

PATIENT
  Age: 15 Year
  Sex: Male
  Weight: 36 kg

DRUGS (4)
  1. KEPPRA [Concomitant]
     Active Substance: LEVETIRACETAM
     Indication: SEIZURE PROPHYLAXIS
     Dosage: 500 MG, BID
     Route: 048
     Dates: start: 20210616
  2. CEFEPIME [Concomitant]
     Active Substance: CEFEPIME HYDROCHLORIDE
     Indication: NEUTROPENIA
     Dosage: 50 MG/KG, Q8H
     Route: 042
     Dates: start: 20210616, end: 20210702
  3. KYMRIAH [Suspect]
     Active Substance: TISAGENLECLEUCEL
     Indication: B-CELL TYPE ACUTE LEUKAEMIA
     Dosage: UNK UNK, ONCE/SINGLE
     Route: 042
     Dates: start: 20210615, end: 20210615
  4. VANCOMYCIN [Concomitant]
     Active Substance: VANCOMYCIN
     Indication: NEUTROPENIA
     Dosage: 15 MG/KG, Q8H
     Route: 042
     Dates: start: 20210616, end: 20210619

REACTIONS (15)
  - Respiratory rate increased [Unknown]
  - Pulmonary oedema [Unknown]
  - Tachycardia [Recovered/Resolved]
  - Pyrexia [Recovered/Resolved]
  - Depressed level of consciousness [Unknown]
  - Haemophagocytic lymphohistiocytosis [Unknown]
  - Cytokine release syndrome [Recovered/Resolved]
  - Cytokine release syndrome [Recovered/Resolved]
  - Hypotension [Recovered/Resolved]
  - Nervousness [Unknown]
  - Anxiety [Unknown]
  - Pyrexia [Recovered/Resolved]
  - Immune effector cell-associated neurotoxicity syndrome [Recovered/Resolved]
  - Oxygen saturation decreased [Unknown]
  - Dysphoria [Unknown]

NARRATIVE: CASE EVENT DATE: 20210616
